FAERS Safety Report 10650590 (Version 2)
Quarter: 2015Q4

REPORT INFORMATION
  Report Type: Spontaneous
  Country: US (occurrence: US)
  Receive Date: 20141214
  Receipt Date: 20151107
  Transmission Date: 20160304
  Serious: No
  Sender: FDA-Public Use
  Company Number: US-BAUSCH-SYM-2014-23075

PATIENT
  Age: 21 Year
  Sex: Male
  Weight: 86.26 kg

DRUGS (6)
  1. XENAZINE [Suspect]
     Active Substance: TETRABENAZINE
     Dosage: ONE TABLET IN THE MORNING, AND TWO TABLETS IN THE EVENING
     Route: 048
     Dates: start: 2014
  2. XENAZINE [Suspect]
     Active Substance: TETRABENAZINE
     Indication: TARDIVE DYSKINESIA
     Dosage: ONE TABLET IN THE EVENING
     Route: 048
     Dates: start: 20140616
  3. XENAZINE [Suspect]
     Active Substance: TETRABENAZINE
     Dosage: 12.5MG TWO TABLETS IN THE MORNING, AND TWO TABLETS IN THE EVENING
     Route: 048
     Dates: start: 20140707
  4. XENAZINE [Suspect]
     Active Substance: TETRABENAZINE
     Dates: start: 20140607
  5. XENAZINE [Suspect]
     Active Substance: TETRABENAZINE
     Indication: TIC
     Dosage: ONE TABLET IN THE MORNING AND ONE TABLET IN THE EVENING
     Route: 048
     Dates: start: 2014
  6. LATUDA [Concomitant]
     Active Substance: LURASIDONE HYDROCHLORIDE
     Indication: PRODUCT USED FOR UNKNOWN INDICATION

REACTIONS (2)
  - Drug ineffective [Unknown]
  - Off label use [Recovered/Resolved]

NARRATIVE: CASE EVENT DATE: 20140607
